FAERS Safety Report 14519158 (Version 4)
Quarter: 2018Q1

REPORT INFORMATION
  Report Type: Report from Study
  Country: ES (occurrence: ES)
  Receive Date: 20180212
  Receipt Date: 20180215
  Transmission Date: 20180509
  Serious: Yes (Hospitalization)
  Sender: FDA-Public Use
  Company Number: ES-TEVA-2018-ES-855615

PATIENT
  Age: 1 Year
  Sex: Female

DRUGS (2)
  1. VALGANCICLOVIR. [Interacting]
     Active Substance: VALGANCICLOVIR
     Route: 065
  2. MYCOPHENOLATE MOFETIL. [Suspect]
     Active Substance: MYCOPHENOLATE MOFETIL
     Indication: IMMUNOSUPPRESSANT DRUG THERAPY
     Dosage: 240 MILLIGRAM DAILY; 120 MG EVERY 12 HOURS
     Route: 065

REACTIONS (2)
  - Agranulocytosis [Recovered/Resolved]
  - Drug interaction [Recovered/Resolved]
